FAERS Safety Report 17546002 (Version 2)
Quarter: 2020Q1

REPORT INFORMATION
  Report Type: Spontaneous
  Country: US (occurrence: US)
  Receive Date: 20200316
  Receipt Date: 20200326
  Transmission Date: 20200409
  Serious: Yes (Other)
  Sender: FDA-Public Use
  Company Number: US-GUERBET-US-20200057

PATIENT

DRUGS (3)
  1. SOTRADECOL [Concomitant]
     Active Substance: SODIUM TETRADECYL SULFATE
     Indication: LYMPHANGIOGRAM
  2. SOTRADECOL [Concomitant]
     Active Substance: SODIUM TETRADECYL SULFATE
     Indication: INTERVENTIONAL PROCEDURE
  3. LIPIODOL [Suspect]
     Active Substance: ETHIODIZED OIL
     Indication: THERAPEUTIC EMBOLISATION

REACTIONS (3)
  - Drug effective for unapproved indication [Recovered/Resolved]
  - Product use in unapproved indication [Recovered/Resolved]
  - Systemic inflammatory response syndrome [Unknown]
